FAERS Safety Report 13056434 (Version 2)
Quarter: 2017Q1

REPORT INFORMATION
  Report Type: Spontaneous
  Country: US (occurrence: US)
  Receive Date: 20161222
  Receipt Date: 20170118
  Transmission Date: 20170428
  Serious: Yes (Life-Threatening, Hospitalization, Other)
  Sender: FDA-Public Use
  Company Number: US-SA-2016SA229017

PATIENT
  Age: 56 Year
  Sex: Female

DRUGS (2)
  1. TRIMETHOPRIM/SULFAMETHOXAZOLE [Interacting]
     Active Substance: SULFAMETHOXAZOLE\TRIMETHOPRIM
     Indication: CELLULITIS
     Route: 065
  2. IRBESARTAN. [Suspect]
     Active Substance: IRBESARTAN
     Route: 065

REACTIONS (10)
  - Atrioventricular block first degree [Unknown]
  - Electrocardiogram PR prolongation [Unknown]
  - Hypotension [Unknown]
  - Hyperkalaemia [Recovered/Resolved]
  - Electrocardiogram T wave peaked [Unknown]
  - Drug interaction [Unknown]
  - Renal impairment [Unknown]
  - Sinus bradycardia [Unknown]
  - Blood creatinine increased [Unknown]
  - Asthenia [Unknown]
